FAERS Safety Report 18134916 (Version 1)
Quarter: 2020Q3

REPORT INFORMATION
  Report Type: Spontaneous
  Country: US (occurrence: US)
  Receive Date: 20200810
  Receipt Date: 20200810
  Transmission Date: 20201103
  Serious: Yes (Hospitalization)
  Sender: FDA-Public Use
  Company Number: None

PATIENT
  Sex: Male

DRUGS (13)
  1. ADVAIR HFA [Suspect]
     Active Substance: FLUTICASONE PROPIONATE\SALMETEROL XINAFOATE
  2. GABAPENTIN. [Suspect]
     Active Substance: GABAPENTIN
  3. SILDENAFIL 20MG [Suspect]
     Active Substance: SILDENAFIL
     Indication: ESSENTIAL HYPERTENSION
     Route: 048
     Dates: start: 201712
  4. ALLOPURINOL. [Suspect]
     Active Substance: ALLOPURINOL
  5. FLUTICASONE. [Suspect]
     Active Substance: FLUTICASONE
  6. PRAVASTATIN. [Suspect]
     Active Substance: PRAVASTATIN
  7. LISINOPRIL. [Suspect]
     Active Substance: LISINOPRIL
  8. SPIRIVA [Suspect]
     Active Substance: TIOTROPIUM BROMIDE MONOHYDRATE
  9. AZELASTINE. [Suspect]
     Active Substance: AZELASTINE HYDROCHLORIDE
  10. METOPROLOL TARTRATE. [Suspect]
     Active Substance: METOPROLOL TARTRATE
  11. PANTOPRAZOLE [Suspect]
     Active Substance: PANTOPRAZOLE
  12. CLOPIDOGREL [Suspect]
     Active Substance: CLOPIDOGREL BISULFATE
  13. FUROSEMIDE. [Suspect]
     Active Substance: FUROSEMIDE

REACTIONS (1)
  - Complication associated with device [None]
